FAERS Safety Report 22040700 (Version 1)
Quarter: 2023Q1

REPORT INFORMATION
  Report Type: Spontaneous
  Country: US (occurrence: US)
  Receive Date: 20230227
  Receipt Date: 20230227
  Transmission Date: 20230418
  Serious: Yes (Hospitalization, Other)
  Sender: FDA-Public Use
  Company Number: US-PPDUS-2023ST000162

PATIENT
  Age: 68 Year
  Sex: Male

DRUGS (1)
  1. TAGRAXOFUSP-ERZS [Suspect]
     Active Substance: TAGRAXOFUSP-ERZS
     Indication: Blastic plasmacytoid dendritic cell neoplasia
     Route: 042

REACTIONS (8)
  - Skin lesion inflammation [Unknown]
  - Skin disorder [Unknown]
  - Ecchymosis [Unknown]
  - Gait disturbance [Unknown]
  - Rhinovirus infection [Unknown]
  - Capillary leak syndrome [Unknown]
  - Pyrexia [Unknown]
  - Epistaxis [Unknown]
